FAERS Safety Report 7531485-X (Version None)
Quarter: 2011Q2

REPORT INFORMATION
  Report Type: 
  Country: None (occurrence: None)
  Receive Date: 20110531
  Receipt Date: 20110516
  Transmission Date: 20111010
  Serious: Yes (Hospitalization, Other)
  Sender: FDA-Public Use
  Company Number: 2011MA005986

PATIENT
  Age: 76 Year
  Sex: Female

DRUGS (3)
  1. FUROSEMIDE [Concomitant]
  2. VERAPAMIL HCL [Suspect]
     Indication: HYPERTENSION
     Dosage: 480 MG;OD
  3. GLICLAZIDE [Concomitant]

REACTIONS (20)
  - TOXICITY TO VARIOUS AGENTS [None]
  - BLOOD MAGNESIUM INCREASED [None]
  - NODAL RHYTHM [None]
  - HYPERHIDROSIS [None]
  - ATRIAL FIBRILLATION [None]
  - BLOOD PH DECREASED [None]
  - BRADYARRHYTHMIA [None]
  - VENTRICULAR FIBRILLATION [None]
  - BLOOD PHOSPHORUS INCREASED [None]
  - LEFT VENTRICULAR HYPERTROPHY [None]
  - BRADYCARDIA [None]
  - BLOOD PRESSURE IMMEASURABLE [None]
  - CARDIOTOXICITY [None]
  - BLOOD UREA INCREASED [None]
  - BLOOD CREATININE INCREASED [None]
  - PCO2 INCREASED [None]
  - HYPOTENSION [None]
  - MYOCARDIAL ISCHAEMIA [None]
  - PO2 DECREASED [None]
  - CIRCULATORY COLLAPSE [None]
